FAERS Safety Report 21240959 (Version 2)
Quarter: 2022Q3

REPORT INFORMATION
  Report Type: Spontaneous
  Country: CA (occurrence: CA)
  Receive Date: 20220823
  Receipt Date: 20220902
  Transmission Date: 20221026
  Serious: Yes (Death, Other)
  Sender: FDA-Public Use
  Company Number: CA-BAYER-2022A115579

PATIENT
  Sex: Male

DRUGS (1)
  1. EYLEA [Suspect]
     Active Substance: AFLIBERCEPT
     Indication: Retinal vein occlusion
     Dosage: 2 MG, SOLUTION FOR INJECTION IN PRE-FILLED SYRINGE, STRENGTH: 40MG/ML
     Dates: start: 20220414, end: 20220613

REACTIONS (1)
  - Death [Fatal]
